FAERS Safety Report 17894190 (Version 4)
Quarter: 2020Q3

REPORT INFORMATION
  Report Type: Spontaneous
  Country: JP (occurrence: JP)
  Receive Date: 20200615
  Receipt Date: 20200721
  Transmission Date: 20201103
  Serious: Yes (Hospitalization, Other)
  Sender: FDA-Public Use
  Company Number: JP-GLAXOSMITHKLINE-JP2020JPN096534

PATIENT
  Age: 59 Year
  Sex: Female
  Weight: 59 kg

DRUGS (9)
  1. LAMICTAL [Suspect]
     Active Substance: LAMOTRIGINE
     Dosage: 75 MG, QD
     Route: 048
     Dates: start: 20200415, end: 20200424
  2. LAMICTAL [Suspect]
     Active Substance: LAMOTRIGINE
     Indication: EPILEPSY
     Dosage: 50 MG, QD
     Route: 048
     Dates: start: 20200324, end: 20200414
  3. NEXIUM CAPSULE [Concomitant]
     Indication: GASTROOESOPHAGEAL REFLUX DISEASE
     Dosage: 20 MG, 1D
     Route: 048
     Dates: end: 20200428
  4. IBUPROFEN. [Concomitant]
     Active Substance: IBUPROFEN
     Dosage: UNK UNK, SINGLE
     Dates: start: 202004, end: 202004
  5. LEXAPRO TABLETS (ESCITALOPRAM OXALATE) [Concomitant]
     Indication: DEPRESSION
     Dosage: 20 MG, 1D
     Route: 048
     Dates: end: 20200428
  6. LOQOA [Concomitant]
     Dosage: UNK
     Route: 061
  7. PRAVASTATIN SODIUM. [Concomitant]
     Active Substance: PRAVASTATIN SODIUM
     Indication: HYPERLIPIDAEMIA
     Dosage: 10 MG, 1D
     Route: 048
     Dates: end: 20200428
  8. ETHYL LOFLAZEPATE [Concomitant]
     Active Substance: ETHYL LOFLAZEPATE
     Indication: SOMATIC SYMPTOM DISORDER
     Dosage: 1 MG, 1D
     Route: 048
     Dates: end: 20200428
  9. ZOLPIDEM TARTRATE TABLETS [Concomitant]
     Active Substance: ZOLPIDEM TARTRATE
     Indication: INSOMNIA
     Dosage: 5 MG, 1D
     Route: 048
     Dates: end: 20200428

REACTIONS (11)
  - Prescribed overdose [Unknown]
  - Pyrexia [Unknown]
  - Off label use [Unknown]
  - Product use issue [Unknown]
  - Lymphadenopathy [Recovering/Resolving]
  - Erythema [Recovering/Resolving]
  - Drug reaction with eosinophilia and systemic symptoms [Recovering/Resolving]
  - Rash papular [Recovering/Resolving]
  - Pruritus [Recovering/Resolving]
  - Eosinophil count increased [Unknown]
  - White blood cell count increased [Unknown]

NARRATIVE: CASE EVENT DATE: 20200324
